FAERS Safety Report 5002366-0 (Version None)
Quarter: 2006Q2

REPORT INFORMATION
  Report Type: 
  Country: None (occurrence: None)
  Receive Date: 20060512
  Receipt Date: 20060502
  Transmission Date: 20061013
  Serious: Yes (Other)
  Sender: FDA-Public Use
  Company Number: 204568

PATIENT
  Age: 80 Year
  Sex: Male

DRUGS (4)
  1. RITUXAN [Suspect]
     Indication: DIFFUSE LARGE B-CELL LYMPHOMA
     Dosage: 375 MG/M2, INTRAVENOUS
     Route: 042
  2. VINCRISTINE [Concomitant]
  3. PREDNISOLONE [Concomitant]
  4. ETPOSIDE (ETOPOSIDE) [Concomitant]

REACTIONS (5)
  - CARDIAC FAILURE [None]
  - CONDITION AGGRAVATED [None]
  - DIFFUSE LARGE B-CELL LYMPHOMA [None]
  - MYOCARDIAL FIBROSIS [None]
  - PLEURAL EFFUSION [None]
